FAERS Safety Report 19711167 (Version 6)
Quarter: 2022Q4

REPORT INFORMATION
  Report Type: Report from Study
  Country: CH (occurrence: CH)
  Receive Date: 20210817
  Receipt Date: 20221014
  Transmission Date: 20230112
  Serious: Yes (Hospitalization, Other)
  Sender: FDA-Public Use
  Company Number: CH-TAKEDA-2021TUS049526

PATIENT
  Age: 76 Year
  Sex: Male
  Weight: 81 kg

DRUGS (69)
  1. ANTIHEMOPHILIC FACTOR, PEGYLATED (MW 20000) HUMAN SEQUENCE RECOMBINANT [Suspect]
     Active Substance: ANTIHEMOPHILIC FACTOR, PEGYLATED (MW 20000) HUMAN SEQUENCE RECOMBINANT
     Indication: Prophylaxis
     Dosage: 2000 DOSAGE FORM, SINGLE
     Route: 042
     Dates: start: 20210506
  2. ANTIHEMOPHILIC FACTOR, PEGYLATED (MW 20000) HUMAN SEQUENCE RECOMBINANT [Suspect]
     Active Substance: ANTIHEMOPHILIC FACTOR, PEGYLATED (MW 20000) HUMAN SEQUENCE RECOMBINANT
     Indication: Prophylaxis
     Dosage: 2000 DOSAGE FORM, SINGLE
     Route: 042
     Dates: start: 20210506
  3. ANTIHEMOPHILIC FACTOR, PEGYLATED (MW 20000) HUMAN SEQUENCE RECOMBINANT [Suspect]
     Active Substance: ANTIHEMOPHILIC FACTOR, PEGYLATED (MW 20000) HUMAN SEQUENCE RECOMBINANT
     Indication: Prophylaxis
     Dosage: 2000 DOSAGE FORM, SINGLE
     Route: 042
     Dates: start: 20210506
  4. ANTIHEMOPHILIC FACTOR, PEGYLATED (MW 20000) HUMAN SEQUENCE RECOMBINANT [Suspect]
     Active Substance: ANTIHEMOPHILIC FACTOR, PEGYLATED (MW 20000) HUMAN SEQUENCE RECOMBINANT
     Dosage: 2000 DOSAGE FORM, SINGLE
     Route: 042
     Dates: start: 20210510, end: 20210510
  5. ANTIHEMOPHILIC FACTOR, PEGYLATED (MW 20000) HUMAN SEQUENCE RECOMBINANT [Suspect]
     Active Substance: ANTIHEMOPHILIC FACTOR, PEGYLATED (MW 20000) HUMAN SEQUENCE RECOMBINANT
     Dosage: 2000 DOSAGE FORM, SINGLE
     Route: 042
     Dates: start: 20210510, end: 20210510
  6. ANTIHEMOPHILIC FACTOR, PEGYLATED (MW 20000) HUMAN SEQUENCE RECOMBINANT [Suspect]
     Active Substance: ANTIHEMOPHILIC FACTOR, PEGYLATED (MW 20000) HUMAN SEQUENCE RECOMBINANT
     Dosage: 2000 DOSAGE FORM, SINGLE
     Route: 042
     Dates: start: 20210510, end: 20210510
  7. ANTIHEMOPHILIC FACTOR, PEGYLATED (MW 20000) HUMAN SEQUENCE RECOMBINANT [Suspect]
     Active Substance: ANTIHEMOPHILIC FACTOR, PEGYLATED (MW 20000) HUMAN SEQUENCE RECOMBINANT
     Dosage: 2000 DOSAGE FORM, SINGLE
     Route: 042
     Dates: start: 20210510, end: 20210510
  8. ANTIHEMOPHILIC FACTOR, PEGYLATED (MW 20000) HUMAN SEQUENCE RECOMBINANT [Suspect]
     Active Substance: ANTIHEMOPHILIC FACTOR, PEGYLATED (MW 20000) HUMAN SEQUENCE RECOMBINANT
     Dosage: 2000 DOSAGE FORM, SINGLE
     Route: 042
     Dates: start: 20210510, end: 20210510
  9. ANTIHEMOPHILIC FACTOR, PEGYLATED (MW 20000) HUMAN SEQUENCE RECOMBINANT [Suspect]
     Active Substance: ANTIHEMOPHILIC FACTOR, PEGYLATED (MW 20000) HUMAN SEQUENCE RECOMBINANT
     Dosage: 2000 DOSAGE FORM, SINGLE
     Route: 042
     Dates: start: 20210510, end: 20210510
  10. ANTIHEMOPHILIC FACTOR, PEGYLATED (MW 20000) HUMAN SEQUENCE RECOMBINANT [Suspect]
     Active Substance: ANTIHEMOPHILIC FACTOR, PEGYLATED (MW 20000) HUMAN SEQUENCE RECOMBINANT
     Dosage: 2000 DOSAGE FORM, SINGLE
     Route: 042
     Dates: start: 20210513, end: 20210513
  11. ANTIHEMOPHILIC FACTOR, PEGYLATED (MW 20000) HUMAN SEQUENCE RECOMBINANT [Suspect]
     Active Substance: ANTIHEMOPHILIC FACTOR, PEGYLATED (MW 20000) HUMAN SEQUENCE RECOMBINANT
     Dosage: 2000 DOSAGE FORM, SINGLE
     Route: 042
     Dates: start: 20210513, end: 20210513
  12. ANTIHEMOPHILIC FACTOR, PEGYLATED (MW 20000) HUMAN SEQUENCE RECOMBINANT [Suspect]
     Active Substance: ANTIHEMOPHILIC FACTOR, PEGYLATED (MW 20000) HUMAN SEQUENCE RECOMBINANT
     Dosage: 2000 DOSAGE FORM, SINGLE
     Route: 042
     Dates: start: 20210513, end: 20210513
  13. ANTIHEMOPHILIC FACTOR, PEGYLATED (MW 20000) HUMAN SEQUENCE RECOMBINANT [Suspect]
     Active Substance: ANTIHEMOPHILIC FACTOR, PEGYLATED (MW 20000) HUMAN SEQUENCE RECOMBINANT
     Dosage: 2000 DOSAGE FORM, SINGLE
     Route: 042
     Dates: start: 20210517
  14. ANTIHEMOPHILIC FACTOR, PEGYLATED (MW 20000) HUMAN SEQUENCE RECOMBINANT [Suspect]
     Active Substance: ANTIHEMOPHILIC FACTOR, PEGYLATED (MW 20000) HUMAN SEQUENCE RECOMBINANT
     Dosage: 2000 DOSAGE FORM, SINGLE
     Route: 042
     Dates: start: 20210517
  15. ANTIHEMOPHILIC FACTOR, PEGYLATED (MW 20000) HUMAN SEQUENCE RECOMBINANT [Suspect]
     Active Substance: ANTIHEMOPHILIC FACTOR, PEGYLATED (MW 20000) HUMAN SEQUENCE RECOMBINANT
     Dosage: 2000 DOSAGE FORM, SINGLE
     Route: 042
     Dates: start: 20210517
  16. ANTIHEMOPHILIC FACTOR, PEGYLATED (MW 20000) HUMAN SEQUENCE RECOMBINANT [Suspect]
     Active Substance: ANTIHEMOPHILIC FACTOR, PEGYLATED (MW 20000) HUMAN SEQUENCE RECOMBINANT
     Dosage: 2000 DOSAGE FORM, SINGLE
     Route: 042
     Dates: start: 20210520
  17. ANTIHEMOPHILIC FACTOR, PEGYLATED (MW 20000) HUMAN SEQUENCE RECOMBINANT [Suspect]
     Active Substance: ANTIHEMOPHILIC FACTOR, PEGYLATED (MW 20000) HUMAN SEQUENCE RECOMBINANT
     Dosage: 2000 DOSAGE FORM, SINGLE
     Route: 042
     Dates: start: 20210520
  18. ANTIHEMOPHILIC FACTOR, PEGYLATED (MW 20000) HUMAN SEQUENCE RECOMBINANT [Suspect]
     Active Substance: ANTIHEMOPHILIC FACTOR, PEGYLATED (MW 20000) HUMAN SEQUENCE RECOMBINANT
     Dosage: 2000 DOSAGE FORM, SINGLE
     Route: 042
     Dates: start: 20210520
  19. ANTIHEMOPHILIC FACTOR, PEGYLATED (MW 20000) HUMAN SEQUENCE RECOMBINANT [Suspect]
     Active Substance: ANTIHEMOPHILIC FACTOR, PEGYLATED (MW 20000) HUMAN SEQUENCE RECOMBINANT
     Dosage: 2000 DOSAGE FORM, SINGLE
     Route: 042
     Dates: start: 20210524
  20. ANTIHEMOPHILIC FACTOR, PEGYLATED (MW 20000) HUMAN SEQUENCE RECOMBINANT [Suspect]
     Active Substance: ANTIHEMOPHILIC FACTOR, PEGYLATED (MW 20000) HUMAN SEQUENCE RECOMBINANT
     Dosage: 2000 DOSAGE FORM, SINGLE
     Route: 042
     Dates: start: 20210524
  21. ANTIHEMOPHILIC FACTOR, PEGYLATED (MW 20000) HUMAN SEQUENCE RECOMBINANT [Suspect]
     Active Substance: ANTIHEMOPHILIC FACTOR, PEGYLATED (MW 20000) HUMAN SEQUENCE RECOMBINANT
     Dosage: 2000 DOSAGE FORM, SINGLE
     Route: 042
     Dates: start: 20210524
  22. ANTIHEMOPHILIC FACTOR, PEGYLATED (MW 20000) HUMAN SEQUENCE RECOMBINANT [Suspect]
     Active Substance: ANTIHEMOPHILIC FACTOR, PEGYLATED (MW 20000) HUMAN SEQUENCE RECOMBINANT
     Dosage: 2000 DOSAGE FORM, SINGLE
     Route: 042
     Dates: start: 20210429
  23. ANTIHEMOPHILIC FACTOR, PEGYLATED (MW 20000) HUMAN SEQUENCE RECOMBINANT [Suspect]
     Active Substance: ANTIHEMOPHILIC FACTOR, PEGYLATED (MW 20000) HUMAN SEQUENCE RECOMBINANT
     Dosage: 2000 DOSAGE FORM, SINGLE
     Route: 042
     Dates: start: 20210429
  24. ANTIHEMOPHILIC FACTOR, PEGYLATED (MW 20000) HUMAN SEQUENCE RECOMBINANT [Suspect]
     Active Substance: ANTIHEMOPHILIC FACTOR, PEGYLATED (MW 20000) HUMAN SEQUENCE RECOMBINANT
     Dosage: 2000 DOSAGE FORM, SINGLE
     Route: 042
     Dates: start: 20210429
  25. ANTIHEMOPHILIC FACTOR, PEGYLATED (MW 20000) HUMAN SEQUENCE RECOMBINANT [Suspect]
     Active Substance: ANTIHEMOPHILIC FACTOR, PEGYLATED (MW 20000) HUMAN SEQUENCE RECOMBINANT
     Dosage: 2000 DOSAGE FORM, SINGLE
     Route: 042
     Dates: start: 20210503
  26. ANTIHEMOPHILIC FACTOR, PEGYLATED (MW 20000) HUMAN SEQUENCE RECOMBINANT [Suspect]
     Active Substance: ANTIHEMOPHILIC FACTOR, PEGYLATED (MW 20000) HUMAN SEQUENCE RECOMBINANT
     Dosage: 2000 DOSAGE FORM, SINGLE
     Route: 042
     Dates: start: 20210503
  27. ANTIHEMOPHILIC FACTOR, PEGYLATED (MW 20000) HUMAN SEQUENCE RECOMBINANT [Suspect]
     Active Substance: ANTIHEMOPHILIC FACTOR, PEGYLATED (MW 20000) HUMAN SEQUENCE RECOMBINANT
     Dosage: 2000 DOSAGE FORM, SINGLE
     Route: 042
     Dates: start: 20210503
  28. AMLODIPINE BESYLATE [Concomitant]
     Active Substance: AMLODIPINE BESYLATE
     Indication: Hypertension
     Dosage: 10 MILLIGRAM, PRN
     Route: 065
     Dates: start: 20210515
  29. AMLODIPINE BESYLATE [Concomitant]
     Active Substance: AMLODIPINE BESYLATE
     Dosage: 5 MILLIGRAM, QD
     Route: 065
     Dates: start: 20120314, end: 20150523
  30. AMLODIPINE [Concomitant]
     Active Substance: AMLODIPINE BESYLATE
     Indication: Hypertension
     Dosage: 10 MILLIGRAM, QD
     Route: 065
     Dates: start: 20210511, end: 20210514
  31. CANDESARTAN [Concomitant]
     Active Substance: CANDESARTAN
     Indication: Hypertension
     Dosage: 16 MILLIGRAM, BID
     Route: 065
     Dates: start: 20210511, end: 20210514
  32. CANDESARTAN [Concomitant]
     Active Substance: CANDESARTAN
     Indication: Hypertension
     Dosage: 32 MILLIGRAM, QD
     Route: 065
     Dates: start: 20200317, end: 20200322
  33. CARVEDILOL [Concomitant]
     Active Substance: CARVEDILOL
     Indication: Hypertension
     Dosage: 50 MILLIGRAM, QD
     Route: 065
     Dates: end: 20210302
  34. DAFALGAN [Concomitant]
     Active Substance: ACETAMINOPHEN
     Indication: Headache
     Dosage: 1 GRAM
     Route: 065
     Dates: end: 20160321
  35. ACETAMINOPHEN\CODEINE PHOSPHATE [Concomitant]
     Active Substance: ACETAMINOPHEN\CODEINE PHOSPHATE
     Indication: Headache
     Dosage: 500 MILLIGRAM, QD
     Route: 065
     Dates: start: 20160321
  36. CYKLOKAPRON [Concomitant]
     Active Substance: TRANEXAMIC ACID
     Indication: Epistaxis
     Dosage: 5 PERCENT, PRN
     Route: 065
     Dates: start: 20201008
  37. MEDROL [Concomitant]
     Active Substance: METHYLPREDNISOLONE
     Indication: Arthropathy
     Dosage: UNK
     Route: 050
     Dates: start: 20171025, end: 20171025
  38. DIAMOX SEQUELS [Concomitant]
     Active Substance: ACETAZOLAMIDE
     Indication: Cataract operation
     Dosage: 250 MILLIGRAM, BID
     Route: 065
     Dates: start: 20200211, end: 20200211
  39. DIAMOX SEQUELS [Concomitant]
     Active Substance: ACETAZOLAMIDE
     Dosage: 250 MILLIGRAM, BID
     Route: 065
     Dates: start: 20200225, end: 20200225
  40. DULCOLAX NOS [Concomitant]
     Active Substance: BISACODYL OR DOCUSATE SODIUM
     Indication: Constipation
     Dosage: UNK UNK, PRN
     Route: 065
     Dates: start: 2020
  41. ENALAPRIL MALEATE [Concomitant]
     Active Substance: ENALAPRIL MALEATE
     Indication: Hypertension
     Dosage: 25 MILLIGRAM, BID
     Route: 065
     Dates: end: 20150323
  42. KALIUM HAUSMANN EFFERVETTES [Concomitant]
     Indication: Hypokalaemia
     Dosage: 30 MILLIMOLE, BID
     Route: 065
     Dates: start: 20210512, end: 20210517
  43. POTASSIUM BICARBONATE\POTASSIUM CITRATE [Concomitant]
     Active Substance: POTASSIUM BICARBONATE\POTASSIUM CITRATE
     Indication: Hypokalaemia
     Dosage: 30 MILLIMOLE, QD
     Route: 065
     Dates: start: 20150812, end: 20150812
  44. KCL [Concomitant]
     Active Substance: POTASSIUM CHLORIDE
     Indication: Hypokalaemia
     Dosage: 40 MILLIMOLE, QD
     Route: 065
     Dates: start: 20210512, end: 20210512
  45. MIRTAZAPINE [Concomitant]
     Active Substance: MIRTAZAPINE
     Indication: Headache
     Dosage: 30 MILLIGRAM, QD
     Route: 065
     Dates: end: 20191104
  46. NEXIUM [Concomitant]
     Active Substance: ESOMEPRAZOLE MAGNESIUM
     Indication: Abdominal discomfort
     Dosage: 40 MILLIGRAM, BID
     Route: 065
     Dates: end: 202003
  47. PANTOPRAZOLE SODIUM [Concomitant]
     Active Substance: PANTOPRAZOLE SODIUM
     Indication: Abdominal discomfort
     Dosage: 40 MILLIGRAM, QD
     Route: 065
     Dates: start: 20210427, end: 20210511
  48. PRED FORTE [Concomitant]
     Active Substance: PREDNISOLONE ACETATE
     Indication: Cataract operation
     Dosage: 1 PERCENT, TID
     Route: 065
     Dates: start: 20200225, end: 20200302
  49. PRED FORTE [Concomitant]
     Active Substance: PREDNISOLONE ACETATE
     Dosage: 1 PERCENT, QID
     Route: 065
     Dates: start: 20200218, end: 20200224
  50. PRED FORTE [Concomitant]
     Active Substance: PREDNISOLONE ACETATE
     Dosage: 1 PERCENT, BID
     Route: 065
     Dates: start: 20200303, end: 20200309
  51. PRED FORTE [Concomitant]
     Active Substance: PREDNISOLONE ACETATE
     Dosage: 1 PERCENT, QD
     Route: 065
     Dates: start: 20200320, end: 20200327
  52. PRED FORTE [Concomitant]
     Active Substance: PREDNISOLONE ACETATE
     Dosage: 1 PERCENT, QID
     Route: 065
     Dates: start: 20200304, end: 20200311
  53. PRED FORTE [Concomitant]
     Active Substance: PREDNISOLONE ACETATE
     Dosage: 1 PERCENT, QD
     Route: 065
     Dates: start: 20200310, end: 20200316
  54. PRED FORTE [Concomitant]
     Active Substance: PREDNISOLONE ACETATE
     Dosage: 1 PERCENT, BID
     Route: 065
     Dates: start: 20200312, end: 20200319
  55. REMERON [Concomitant]
     Active Substance: MIRTAZAPINE
     Indication: Headache
     Dosage: 7.5 MILLIGRAM, QD
     Route: 065
     Dates: start: 20161130
  56. ROPIVACAINE [Concomitant]
     Active Substance: ROPIVACAINE
     Indication: Arthropathy
     Dosage: UNK
     Route: 050
     Dates: start: 20171025, end: 20171025
  57. NALOXONE HYDROCHLORIDE\OXYCODONE HYDROCHLORIDE [Concomitant]
     Active Substance: NALOXONE HYDROCHLORIDE\OXYCODONE HYDROCHLORIDE
     Indication: Pain
     Dosage: 10 MILLIGRAM, PRN
     Route: 065
     Dates: start: 20190506, end: 201909
  58. TOBRADEX [Concomitant]
     Active Substance: DEXAMETHASONE\TOBRAMYCIN
     Indication: Cataract operation
     Dosage: 1 MILLIGRAM, 5 TIMES PER DAY
     Route: 047
     Dates: start: 20200211, end: 20200217
  59. TOBRADEX [Concomitant]
     Active Substance: DEXAMETHASONE\TOBRAMYCIN
     Dosage: 1 MILLIGRAM, 5 TIMES PER DAY
     Route: 047
     Dates: start: 20200225, end: 20200304
  60. TOBRADEX [Concomitant]
     Active Substance: DEXAMETHASONE\TOBRAMYCIN
     Dosage: 1 MILLIGRAM, QD
     Route: 065
     Dates: start: 20200211, end: 20200217
  61. TOBRADEX [Concomitant]
     Active Substance: DEXAMETHASONE\TOBRAMYCIN
     Dosage: 1 APPLICATION, QD
     Route: 065
     Dates: start: 20200225, end: 20200304
  62. TRAMADOL [Concomitant]
     Active Substance: TRAMADOL
     Indication: Pain
     Dosage: 100 MILLIGRAM, BID
     Route: 065
     Dates: start: 20200928, end: 20210101
  63. Vascord [Concomitant]
     Indication: Hypertension
     Dosage: UNK UNK, QD
     Route: 065
     Dates: start: 20191004, end: 20210511
  64. Vascord [Concomitant]
     Dosage: UNK UNK, QD
     Route: 065
     Dates: start: 20210515
  65. AMLODIPINE BESYLATE\HYDROCHLOROTHIAZIDE\OLMESARTAN MEDOXOMIL [Concomitant]
     Active Substance: AMLODIPINE BESYLATE\HYDROCHLOROTHIAZIDE\OLMESARTAN MEDOXOMIL
     Indication: Hypertension
     Dosage: 40 MILLIGRAM, QD
     Route: 065
     Dates: start: 20190204, end: 20191104
  66. BROMFENAC SODIUM [Concomitant]
     Active Substance: BROMFENAC SODIUM
     Indication: Cataract operation
     Dosage: 0.9 MILLIGRAM, BID
     Route: 065
     Dates: start: 20200211, end: 20200224
  67. BROMFENAC SODIUM [Concomitant]
     Active Substance: BROMFENAC SODIUM
     Dosage: 0.9 MILLIGRAM, BID
     Route: 065
     Dates: start: 20200225, end: 20200308
  68. ZOLPIDEM [Concomitant]
     Active Substance: ZOLPIDEM TARTRATE
     Indication: Headache
     Dosage: 10 MILLIGRAM, QD
     Route: 065
  69. Lacri Vision [Concomitant]
     Indication: Cataract operation
     Dosage: UNK UNK, PRN
     Dates: start: 20200211

REACTIONS (2)
  - Haemarthrosis [Recovered/Resolved]
  - Hypokalaemia [Recovered/Resolved]

NARRATIVE: CASE EVENT DATE: 20210510
